FAERS Safety Report 25155108 (Version 1)
Quarter: 2025Q2

REPORT INFORMATION
  Report Type: Spontaneous
  Country: US (occurrence: US)
  Receive Date: 20250403
  Receipt Date: 20250403
  Transmission Date: 20250717
  Serious: Yes (Other)
  Sender: SUNOVION
  Company Number: US-SMPA-2025SPA003533AA

PATIENT

DRUGS (8)
  1. GEMTESA [Suspect]
     Active Substance: VIBEGRON
     Indication: Hypertonic bladder
     Route: 048
  2. ATORVASTATIN [Concomitant]
     Active Substance: ATORVASTATIN
     Indication: Blood cholesterol increased
     Route: 065
  3. ATORVASTATIN [Concomitant]
     Active Substance: ATORVASTATIN
     Indication: Cardiovascular event prophylaxis
  4. LEFLUNOMIDE [Concomitant]
     Active Substance: LEFLUNOMIDE
     Indication: Arthritis
     Route: 065
  5. MOUNJARO [Concomitant]
     Active Substance: TIRZEPATIDE
     Indication: Diabetes mellitus
     Route: 065
  6. GLIPIZIDE [Concomitant]
     Active Substance: GLIPIZIDE
     Indication: Diabetes mellitus
     Dosage: 2 DF, QD
     Route: 065
  7. GLIPIZIDE [Concomitant]
     Active Substance: GLIPIZIDE
     Route: 065
  8. GLIPIZIDE [Concomitant]
     Active Substance: GLIPIZIDE
     Route: 065

REACTIONS (5)
  - Blood loss anaemia [Unknown]
  - Diarrhoea haemorrhagic [Unknown]
  - Abdominal discomfort [Unknown]
  - Weight decreased [Unknown]
  - Nausea [Unknown]

NARRATIVE: CASE EVENT DATE: 20250301
